FAERS Safety Report 25960488 (Version 1)
Quarter: 2025Q4

REPORT INFORMATION
  Report Type: Spontaneous
  Country: US (occurrence: US)
  Receive Date: 20251027
  Receipt Date: 20251027
  Transmission Date: 20260117
  Serious: No
  Sender: NOVAST LABORATORIES LTD
  Company Number: US-NOVAST LABORATORIES INC.-2024NOV000337

PATIENT

DRUGS (1)
  1. DEBLITANE [Suspect]
     Active Substance: NORETHINDRONE
     Indication: Contraception
     Dosage: UNK
     Route: 065
     Dates: start: 202408

REACTIONS (5)
  - Dry skin [Unknown]
  - Mood swings [Unknown]
  - Acne cystic [Unknown]
  - Weight increased [Unknown]
  - Product substitution issue [Unknown]
